FAERS Safety Report 8585174-3 (Version None)
Quarter: 2012Q2

REPORT INFORMATION
  Report Type: 
  Country: None (occurrence: None)
  Receive Date: 20120423
  Receipt Date: 20111202
  Transmission Date: 20120825
  Serious: Yes (Other)
  Sender: FDA-Public Use
  Company Number: FK201102862

PATIENT
  Sex: Male
  Weight: 88.1793 kg

DRUGS (11)
  1. GLUCOSAMINE CHONDROITIN [Suspect]
  2. HYDROCHLOROTHIAZIDE [Concomitant]
  3. LISINOPRIL [Concomitant]
  4. CALCIUM CARBONATE [Concomitant]
  5. HEPARIN SODIUM [Suspect]
     Indication: INDWELLING CATHETER MANAGEMENT
  6. ASPIRIN [Concomitant]
  7. PROVENGE [Suspect]
     Indication: PROSTATE CANCER METASTATIC
     Dosage: 250ML, SINGLE, INTRAVENOUS (NOT OTHERWISE SPECIFIED)
     Route: 042
     Dates: start: 20111031, end: 20111031
  8. LUPRON DEPOT [Concomitant]
  9. CHOLECALCIFEROL (COLECALCIFEROL) [Concomitant]
  10. ALENDRONATE SODIUM [Concomitant]
  11. MULTI-VITAMINS [Concomitant]

REACTIONS (2)
  - PLATELET COUNT DECREASED [None]
  - HAEMATURIA [None]
